FAERS Safety Report 12396163 (Version 1)
Quarter: 2016Q2

REPORT INFORMATION
  Report Type: Spontaneous
  Country: BR (occurrence: BR)
  Receive Date: 20160524
  Receipt Date: 20160524
  Transmission Date: 20160815
  Serious: Yes (Hospitalization, Other)
  Sender: FDA-Public Use
  Company Number: BR-ROCHE-1761161

PATIENT
  Age: 80 Year
  Sex: Female

DRUGS (4)
  1. RIVOTRIL [Suspect]
     Active Substance: CLONAZEPAM
     Indication: INSOMNIA
     Route: 065
  2. PRESSAT [Concomitant]
     Active Substance: AMLODIPINE BESYLATE
     Indication: CARDIAC DISORDER
     Route: 065
     Dates: start: 2001
  3. CONCOR [Concomitant]
     Active Substance: BISOPROLOL FUMARATE
     Indication: CARDIAC DISORDER
     Route: 065
     Dates: start: 2001
  4. ARADOIS [Concomitant]
     Active Substance: LOSARTAN POTASSIUM
     Indication: CARDIAC DISORDER
     Route: 065
     Dates: start: 2001

REACTIONS (9)
  - Palpitations [Unknown]
  - Malaise [Unknown]
  - Arthropathy [Unknown]
  - Visual impairment [Unknown]
  - Drug ineffective [Unknown]
  - Dizziness [Unknown]
  - Bone disorder [Unknown]
  - Fall [Unknown]
  - Eye disorder [Unknown]

NARRATIVE: CASE EVENT DATE: 20160518
